FAERS Safety Report 15487851 (Version 1)
Quarter: 2018Q4

REPORT INFORMATION
  Report Type: Spontaneous
  Country: US (occurrence: US)
  Receive Date: 20181011
  Receipt Date: 20181011
  Transmission Date: 20190205
  Serious: No
  Sender: FDA-Public Use
  Company Number: US-BAYER-2018-188533

PATIENT
  Age: 51 Year
  Sex: Female
  Weight: 112.97 kg

DRUGS (15)
  1. SYNTHROID [Concomitant]
     Active Substance: LEVOTHYROXINE SODIUM
  2. COLACE [Concomitant]
     Active Substance: DOCUSATE SODIUM
  3. IRON [Concomitant]
     Active Substance: IRON
  4. METFORMIN [Concomitant]
     Active Substance: METFORMIN HYDROCHLORIDE
  5. PRILOSEC [Concomitant]
     Active Substance: OMEPRAZOLE MAGNESIUM
  6. ZEGERID OTC CAPSULES [Suspect]
     Active Substance: OMEPRAZOLE\SODIUM BICARBONATE
     Indication: GASTROOESOPHAGEAL REFLUX DISEASE
     Dosage: 1 DF, HS
     Route: 048
  7. ZETIA [Concomitant]
     Active Substance: EZETIMIBE
  8. QVAR [Concomitant]
     Active Substance: BECLOMETHASONE DIPROPIONATE
  9. VITAMIN D [COLECALCIFEROL] [Concomitant]
  10. SLO-MAG [Concomitant]
  11. ATROVENT [Concomitant]
     Active Substance: IPRATROPIUM BROMIDE
  12. VALSARTAN. [Concomitant]
     Active Substance: VALSARTAN
  13. ALBUTEROL. [Concomitant]
     Active Substance: ALBUTEROL
  14. ZEGERID OTC CAPSULES [Suspect]
     Active Substance: OMEPRAZOLE\SODIUM BICARBONATE
     Indication: GASTROOESOPHAGEAL REFLUX DISEASE
     Dosage: 1 DF, HS
     Route: 048
  15. CRESTOR [Concomitant]
     Active Substance: ROSUVASTATIN CALCIUM

REACTIONS (4)
  - Poor quality product administered [Unknown]
  - Product use in unapproved indication [Unknown]
  - Product use issue [Unknown]
  - Product quality issue [Unknown]
